FAERS Safety Report 4717179-4 (Version None)
Quarter: 2005Q3

REPORT INFORMATION
  Report Type: 
  Country: None (occurrence: None)
  Receive Date: 20050715
  Receipt Date: 20050708
  Transmission Date: 20060218
  Serious: Yes (Hospitalization, Disabling)
  Sender: FDA-Public Use
  Company Number: 11768

PATIENT
  Age: 77 Year
  Sex: Male

DRUGS (4)
  1. METHOTREXATE [Suspect]
     Indication: RHEUMATOID ARTHRITIS
     Dosage: 20 MG WEEKLY, PO
     Route: 048
     Dates: start: 20040601, end: 20050301
  2. PREDNISOLONE [Suspect]
     Dosage: 10 MG, PO
     Route: 048
  3. FOLIC ACID [Concomitant]
  4. DICLOFENAC SODIUM [Concomitant]

REACTIONS (1)
  - PULMONARY TUBERCULOSIS [None]
